FAERS Safety Report 7651503-8 (Version None)
Quarter: 2011Q3

REPORT INFORMATION
  Report Type: 
  Country: None (occurrence: None)
  Receive Date: 20110802
  Receipt Date: 20110725
  Transmission Date: 20111222
  Serious: Yes (Other)
  Sender: FDA-Public Use
  Company Number: PHHY2011HR67239

PATIENT
  Age: 30 Year
  Sex: Male

DRUGS (2)
  1. TRILEPTAL [Suspect]
     Indication: PARTIAL SEIZURES
     Dosage: 600 MG, QID
     Route: 048
     Dates: start: 20100201
  2. LAMOTRIGINE [Suspect]
     Indication: PARTIAL SEIZURES
     Dosage: 100 MG, BID
     Route: 048
     Dates: start: 20100201

REACTIONS (3)
  - GENERAL PHYSICAL HEALTH DETERIORATION [None]
  - DISTURBANCE IN ATTENTION [None]
  - INSOMNIA [None]
